FAERS Safety Report 9708989 (Version 1)
Quarter: 2013Q4

REPORT INFORMATION
  Report Type: Spontaneous
  Country: US (occurrence: US)
  Receive Date: 20131125
  Receipt Date: 20131125
  Transmission Date: 20140711
  Serious: Yes (Hospitalization)
  Sender: FDA-Public Use
  Company Number: US-FRI-1000051567

PATIENT
  Age: 74 Year
  Sex: Female
  Weight: 59.4 kg

DRUGS (6)
  1. DALIRESP [Suspect]
     Indication: CHRONIC OBSTRUCTIVE PULMONARY DISEASE
     Dosage: 500 MCG
     Route: 048
     Dates: start: 20130802, end: 20130803
  2. VITAMIN B-12 [Concomitant]
  3. FISH OIL [Concomitant]
  4. SELENIUM [Concomitant]
  5. ASPIRIN [Concomitant]
  6. CENTRUM SILVER [Concomitant]

REACTIONS (1)
  - Adverse drug reaction [Unknown]
